FAERS Safety Report 8849447 (Version 2)
Quarter: 2012Q4

REPORT INFORMATION
  Report Type: Spontaneous
  Country: US (occurrence: None)
  Receive Date: 20121017
  Receipt Date: 20121024
  Transmission Date: 20130627
  Serious: Yes (Death, Hospitalization)
  Sender: FDA-Public Use
  Company Number: 2012AP003364

PATIENT
  Age: 17 Year
  Sex: Female

DRUGS (7)
  1. MYCOPHENOLATE MOFETIL [Suspect]
     Indication: IMMUNOSUPPRESSANT DRUG THERAPY
  2. ANTITHYMOCYTE IMMUNOGLOBULIN [Suspect]
     Indication: IMMUNOSUPPRESSANT DRUG THERAPY
  3. PREDNISONE [Suspect]
     Indication: IMMUNOSUPPRESSANT DRUG THERAPY
  4. SOLU-MEDROL [Suspect]
     Indication: IMMUNOSUPPRESSANT DRUG THERAPY
  5. TACROLIMUS [Suspect]
     Indication: IMMUNOSUPPRESSANT DRUG THERAPY
  6. GANCICLOVIR [Concomitant]
  7. VALGANCICLOVIR [Concomitant]

REACTIONS (13)
  - Post transplant lymphoproliferative disorder [None]
  - Cytomegalovirus test positive [None]
  - Epstein-Barr virus test positive [None]
  - Pyrexia [None]
  - Headache [None]
  - Fatigue [None]
  - Somnolence [None]
  - Mental status changes [None]
  - Diffuse large B-cell lymphoma [None]
  - Multi-organ failure [None]
  - Brain oedema [None]
  - Brain herniation [None]
  - Cerebral haemorrhage [None]
